FAERS Safety Report 4302873-X (Version None)
Quarter: 2004Q1

REPORT INFORMATION
  Report Type: 
  Country: None (occurrence: None)
  Receive Date: 20040223
  Receipt Date: 20040223
  Transmission Date: 20041129
  Serious: Yes (Hospitalization)
  Sender: FDA-Public Use
  Company Number: None

PATIENT
  Sex: Female

DRUGS (2)
  1. CARBOPLATIN [Suspect]
     Indication: SMALL CELL LUNG CANCER STAGE UNSPECIFIED
     Dosage: AUC 5 EVERY 21 IV
     Route: 042
     Dates: start: 20031212, end: 20040206
  2. CPT-11 PFIZER [Suspect]
     Indication: SMALL CELL LUNG CANCER STAGE UNSPECIFIED
     Dosage: 37.5 MG/M2 IV
     Route: 042
     Dates: start: 20031212, end: 20040206

REACTIONS (6)
  - ABDOMINAL PAIN LOWER [None]
  - CONSTIPATION [None]
  - DIARRHOEA [None]
  - FAECALOMA [None]
  - LEUKOPENIA [None]
  - SYNCOPE [None]
